FAERS Safety Report 7095800-6 (Version None)
Quarter: 2010Q4

REPORT INFORMATION
  Report Type: 
  Country: None (occurrence: None)
  Receive Date: 20101109
  Receipt Date: 20101109
  Transmission Date: 20110411
  Serious: Yes (Hospitalization)
  Sender: FDA-Public Use
  Company Number: None

PATIENT
  Age: 69 Year
  Sex: Female
  Weight: 83.5 kg

DRUGS (13)
  1. TEMSIROLIMUS [Suspect]
     Indication: OVARIAN CANCER
     Dosage: 10 MG IV WEEKLY
     Route: 042
     Dates: start: 20100727, end: 20100928
  2. CEDIRANIB [Suspect]
     Dosage: 15 MG PO QD
     Route: 048
     Dates: start: 20100727, end: 20101005
  3. ALENDRONATE [Concomitant]
  4. LORAZEPAM [Concomitant]
  5. LISINOPRIL [Concomitant]
  6. LOPERAMIDE [Concomitant]
  7. GABAPENTIN [Concomitant]
  8. AMLODIPINE [Concomitant]
  9. PREDNISONE [Concomitant]
  10. FLUOXETINE HCL [Concomitant]
  11. HYDROCORDONE [Concomitant]
  12. ONDANSETRON [Concomitant]
  13. NEUTRA-PHOS [Concomitant]

REACTIONS (5)
  - ABSCESS LIMB [None]
  - ERYTHEMA [None]
  - OEDEMA PERIPHERAL [None]
  - PAIN [None]
  - TENDERNESS [None]
